FAERS Safety Report 20136150 (Version 1)
Quarter: 2021Q4

REPORT INFORMATION
  Report Type: Spontaneous
  Country: US (occurrence: None)
  Receive Date: 20211130
  Receipt Date: 20211130
  Transmission Date: 20220303
  Serious: No
  Sender: FDA-Public Use
  Company Number: None

PATIENT

DRUGS (1)
  1. BETADINE [Suspect]
     Active Substance: POVIDONE-IODINE
     Indication: Application site pain

REACTIONS (10)
  - Application site erythema [None]
  - Application site pain [None]
  - Blister [None]
  - Swelling [None]
  - Pemphigoid [None]
  - Drug hypersensitivity [None]
  - Magnetic resonance imaging abnormal [None]
  - Wrong technique in product usage process [None]
  - Disability [None]
  - Frostbite [None]
